FAERS Safety Report 16993619 (Version 1)
Quarter: 2019Q4

REPORT INFORMATION
  Report Type: Spontaneous
  Country: US (occurrence: US)
  Receive Date: 20191105
  Receipt Date: 20191105
  Transmission Date: 20200122
  Serious: Yes (Other)
  Sender: FDA-Public Use
  Company Number: US-AMERICAN REGENT INC-2019002366

PATIENT
  Age: 49 Year
  Sex: Female

DRUGS (1)
  1. DEXAMETHASONE SODIUM PHOSPHATE INJECTION, USP (4901-25) [Suspect]
     Active Substance: DEXAMETHASONE SODIUM PHOSPHATE
     Indication: MENINGITIS BACTERIAL
     Dosage: UNK
     Route: 065

REACTIONS (2)
  - Cerebral venous thrombosis [Recovered/Resolved]
  - Product use in unapproved indication [Unknown]
